FAERS Safety Report 17184352 (Version 1)
Quarter: 2019Q4

REPORT INFORMATION
  Report Type: Spontaneous
  Country: IT (occurrence: IT)
  Receive Date: 20191220
  Receipt Date: 20191220
  Transmission Date: 20200122
  Serious: Yes (Hospitalization, Other)
  Sender: FDA-Public Use
  Company Number: IT-MYLANLABS-2019M1125342

PATIENT
  Age: 16 Year
  Sex: Female

DRUGS (3)
  1. AZATHIOPRINE. [Suspect]
     Active Substance: AZATHIOPRINE
     Indication: PRODUCT USED FOR UNKNOWN INDICATION
     Dosage: 50 MG, BID
     Route: 065
  2. MESALAZINE [Suspect]
     Active Substance: MESALAMINE
     Indication: COLITIS ULCERATIVE
     Dosage: 800 MG, 5 DAILY
     Route: 065
  3. BECLOMETASONE [Suspect]
     Active Substance: BECLOMETHASONE DIPROPIONATE
     Indication: COLITIS ULCERATIVE
     Dosage: TWICE WEEKLY
     Route: 054

REACTIONS (6)
  - Rash [Recovering/Resolving]
  - Diarrhoea [Unknown]
  - Haematochezia [Unknown]
  - Photosensitivity reaction [Recovering/Resolving]
  - Burning sensation [Recovering/Resolving]
  - Off label use [Unknown]
